FAERS Safety Report 16528072 (Version 2)
Quarter: 2019Q3

REPORT INFORMATION
  Report Type: Report from Study
  Country: US (occurrence: US)
  Receive Date: 20190704
  Receipt Date: 20190806
  Transmission Date: 20191004
  Serious: No
  Sender: FDA-Public Use
  Company Number: US-AMGEN-USASP2019104384

PATIENT
  Age: 68 Year
  Sex: Female

DRUGS (1)
  1. REPATHA [Suspect]
     Active Substance: EVOLOCUMAB
     Indication: BLOOD CHOLESTEROL INCREASED
     Dosage: 140 MILLIGRAM, Q2WK
     Route: 065
     Dates: end: 20190627

REACTIONS (6)
  - Throat tightness [Unknown]
  - Neck pain [Unknown]
  - Dysphonia [Unknown]
  - Pruritus [Unknown]
  - Muscle twitching [Unknown]
  - Rhinorrhoea [Unknown]
